FAERS Safety Report 13568092 (Version 1)
Quarter: 2017Q2

REPORT INFORMATION
  Report Type: Spontaneous
  Country: US (occurrence: US)
  Receive Date: 20170522
  Receipt Date: 20170522
  Transmission Date: 20170830
  Serious: Yes (Hospitalization)
  Sender: FDA-Public Use
  Company Number: US-PFIZER INC-2017212670

PATIENT
  Age: 84 Day
  Sex: Female

DRUGS (3)
  1. PROPANOLOL HCL [Suspect]
     Active Substance: PROPRANOLOL HYDROCHLORIDE
     Dosage: 1.4 MG, 3X/DAY, (2 MG/KG /DAY)
     Route: 048
  2. PROPANOLOL HCL [Suspect]
     Active Substance: PROPRANOLOL HYDROCHLORIDE
     Dosage: 0.7 MG, 3X/DAY (EVERY 8H)
     Route: 048
  3. PROPANOLOL HCL [Suspect]
     Active Substance: PROPRANOLOL HYDROCHLORIDE
     Indication: INFANTILE HAEMANGIOMA
     Dosage: 0.7 MG, 3X/DAY (1 MG/KG/DAY)
     Route: 048

REACTIONS (2)
  - Body temperature fluctuation [Recovering/Resolving]
  - Product use in unapproved indication [Recovering/Resolving]
